FAERS Safety Report 4268118-4 (Version None)
Quarter: 2004Q1

REPORT INFORMATION
  Report Type: 
  Country: None (occurrence: None)
  Receive Date: 20040109
  Receipt Date: 20040107
  Transmission Date: 20041129
  Serious: Yes (Death)
  Sender: FDA-Public Use
  Company Number: JP-ROCHE-355185

PATIENT
  Age: 12 Month
  Sex: Female

DRUGS (8)
  1. TORSEMIDE [Suspect]
     Route: 048
     Dates: start: 20010111, end: 20011205
  2. ENALAPRIL [Suspect]
     Indication: DRUG USE FOR UNKNOWN INDICATION
     Route: 048
     Dates: start: 20001215, end: 20011204
  3. ASPARA K [Concomitant]
     Dates: start: 20001015, end: 20010210
  4. RIZABEN [Concomitant]
     Dates: start: 20001215, end: 20011204
  5. DIGOSIN [Concomitant]
     Dates: start: 20001215, end: 20011204
  6. PROCYLIN [Concomitant]
     Dates: start: 20001215, end: 20031204
  7. PHENOBAL [Concomitant]
     Dates: start: 20001215, end: 20011204
  8. WATER RESTRICTION [Concomitant]

REACTIONS (7)
  - ACIDOSIS [None]
  - BRADYCARDIA [None]
  - BRONCHOSPASM [None]
  - CARDIAC ARREST [None]
  - DEHYDRATION [None]
  - RENAL FAILURE [None]
  - TACHYCARDIA [None]
